FAERS Safety Report 19931197 (Version 3)
Quarter: 2022Q1

REPORT INFORMATION
  Report Type: Spontaneous
  Country: SG (occurrence: SG)
  Receive Date: 20211008
  Receipt Date: 20220103
  Transmission Date: 20220423
  Serious: Yes (Other)
  Sender: FDA-Public Use
  Company Number: SG-MLMSERVICE-20210902-3078205-1

PATIENT
  Age: 26 Year
  Sex: Male

DRUGS (2)
  1. SERTRALINE [Suspect]
     Active Substance: SERTRALINE HYDROCHLORIDE
     Indication: MELAS syndrome
     Dosage: UNK
     Route: 065
  2. FLUOXETINE [Suspect]
     Active Substance: FLUOXETINE HYDROCHLORIDE
     Indication: MELAS syndrome
     Dosage: 20 MG, QD
     Route: 065

REACTIONS (3)
  - Irritability [Unknown]
  - Condition aggravated [Unknown]
  - Sedation [Unknown]
